FAERS Safety Report 10740906 (Version 1)
Quarter: 2015Q1

REPORT INFORMATION
  Report Type: Spontaneous
  Country: US (occurrence: US)
  Receive Date: 20150127
  Receipt Date: 20150127
  Transmission Date: 20150721
  Serious: No
  Sender: FDA-Public Use
  Company Number: US-MYLANLABS-2014S1000065

PATIENT
  Age: 61 Year
  Sex: Male
  Weight: 90.27 kg

DRUGS (2)
  1. NIFEDIPINE EXTENDED-RELEASE TABLETS, USP [Suspect]
     Active Substance: NIFEDIPINE
     Indication: HYPERTENSION
     Dosage: 90 MG,QD
     Route: 048
     Dates: start: 20131228
  2. CRESTOR [Concomitant]
     Active Substance: ROSUVASTATIN CALCIUM
     Dosage: UNK UNK,QD

REACTIONS (3)
  - Drug ineffective [Not Recovered/Not Resolved]
  - Dyspepsia [Not Recovered/Not Resolved]
  - Blood pressure diastolic increased [Not Recovered/Not Resolved]

NARRATIVE: CASE EVENT DATE: 20131228
